FAERS Safety Report 22628449 (Version 1)
Quarter: 2023Q2

REPORT INFORMATION
  Report Type: Spontaneous
  Country: US (occurrence: None)
  Receive Date: 20230619
  Receipt Date: 20230619
  Transmission Date: 20230722
  Serious: No
  Sender: FDA-Public Use
  Company Number: None

PATIENT
  Age: 65 Year
  Weight: 0.0 kg

DRUGS (1)
  1. ENBREL [Suspect]
     Active Substance: ETANERCEPT
     Indication: Rheumatoid arthritis
     Dosage: INJECT 50MG SUBCUTANEOUSLY ONCE A WEEK AS DIRECTED
     Route: 058
     Dates: start: 202304

REACTIONS (2)
  - Cardiac failure [None]
  - Therapy interrupted [None]
